FAERS Safety Report 5153895-0 (Version None)
Quarter: 2006Q4

REPORT INFORMATION
  Report Type: 
  Country: None (occurrence: None)
  Receive Date: 20061120
  Receipt Date: 20060614
  Transmission Date: 20070319
  Serious: Yes (Life-Threatening, Hospitalization, Other)
  Sender: FDA-Public Use
  Company Number: PHEH2006US07865

PATIENT
  Age: 58 Year
  Sex: Female

DRUGS (4)
  1. TEGRETOL T12565+TAB [Suspect]
     Dosage: UNK,UNK
     Dates: start: 19940901
  2. TEGRETOL T12565+TAB [Suspect]
     Dosage: 4DF/DAY
  3. TEGRETOL T12565+TAB [Suspect]
     Dosage: 1/2DF/DAY
  4. NEURONTIN [Concomitant]
     Indication: CONVULSION
     Dosage: UNK, UNK

REACTIONS (16)
  - ACTIVITIES OF DAILY LIVING IMPAIRED [None]
  - ANTICONVULSANT DRUG LEVEL INCREASED [None]
  - BLOOD GLUCOSE INCREASED [None]
  - BLOOD OSMOLARITY DECREASED [None]
  - BLOOD POTASSIUM DECREASED [None]
  - BLOOD URIC ACID DECREASED [None]
  - COGNITIVE DISORDER [None]
  - COMA [None]
  - DISTURBANCE IN ATTENTION [None]
  - FEELING ABNORMAL [None]
  - HAEMATOCRIT DECREASED [None]
  - MEAN PLATELET VOLUME DECREASED [None]
  - NYSTAGMUS [None]
  - RED BLOOD CELL COUNT DECREASED [None]
  - THERAPY RESPONDER [None]
  - WHITE BLOOD CELL COUNT DECREASED [None]
